FAERS Safety Report 20326329 (Version 1)
Quarter: 2022Q1

REPORT INFORMATION
  Report Type: Spontaneous
  Country: CA (occurrence: None)
  Receive Date: 20220112
  Receipt Date: 20220112
  Transmission Date: 20220424
  Serious: Yes (Other)
  Sender: FDA-Public Use
  Company Number: CA-ROCHE-2998033

PATIENT
  Sex: Female

DRUGS (16)
  1. RITUXIMAB [Suspect]
     Active Substance: RITUXIMAB
     Indication: Granulomatosis with polyangiitis
     Route: 041
  2. PREDNISONE [Suspect]
     Active Substance: PREDNISONE
     Indication: Product used for unknown indication
     Route: 065
  3. BENADRYL [Concomitant]
     Active Substance: DIPHENHYDRAMINE HYDROCHLORIDE
     Indication: Premedication
     Route: 065
  4. BIOTIN [Concomitant]
     Active Substance: BIOTIN
     Route: 065
  5. CALCIUM [Concomitant]
     Active Substance: CALCIUM
     Route: 065
  6. HYALURONIC ACID [Concomitant]
     Active Substance: HYALURONIC ACID
  7. HYDROXYCHLOROQUINE [Concomitant]
     Active Substance: HYDROXYCHLOROQUINE
     Route: 065
  8. JUBLIA [Concomitant]
     Active Substance: EFINACONAZOLE
     Route: 061
  9. KETOCONAZOLE [Concomitant]
     Active Substance: KETOCONAZOLE
     Route: 065
  10. METHYLPREDNISOLONE SODIUM SUCCINATE [Concomitant]
     Active Substance: METHYLPREDNISOLONE SODIUM SUCCINATE
     Indication: Premedication
     Route: 065
  11. MOMETASONE FUROATE [Concomitant]
     Active Substance: MOMETASONE FUROATE
  12. NASONEX [Concomitant]
     Active Substance: MOMETASONE FUROATE
     Dosage: INTRA-NASAL ROUTE OF ADMINISTRATION.
  13. OLOPATADINE [Concomitant]
     Active Substance: OLOPATADINE
     Route: 065
  14. RISEDRONATE SODIUM [Concomitant]
     Active Substance: RISEDRONATE SODIUM
  15. SEPTRA [Concomitant]
     Active Substance: SULFAMETHOXAZOLE\TRIMETHOPRIM
  16. TYLENOL [Concomitant]
     Active Substance: ACETAMINOPHEN
     Indication: Premedication
     Route: 048

REACTIONS (1)
  - Cataract [Unknown]
